FAERS Safety Report 5090809-6 (Version None)
Quarter: 2006Q3

REPORT INFORMATION
  Report Type: 
  Country: None (occurrence: None)
  Receive Date: 20060823
  Receipt Date: 20060814
  Transmission Date: 20061208
  Serious: Yes (Hospitalization)
  Sender: FDA-Public Use
  Company Number: 2006RR-03326

PATIENT
  Age: 83 Year
  Sex: Male

DRUGS (3)
  1. IBUPROFEN [Suspect]
     Indication: PAIN
     Dosage: 400 MG, PRN, ORAL
     Route: 048
     Dates: start: 19960101, end: 20060628
  2. BENDROFLUAZIDE            (BENDROFLUMETHIAZIDE) [Concomitant]
  3. SENNA [Concomitant]

REACTIONS (4)
  - ANAEMIA [None]
  - DUODENAL ULCER [None]
  - DUODENITIS [None]
  - FATIGUE [None]
